FAERS Safety Report 14192138 (Version 2)
Quarter: 2018Q1

REPORT INFORMATION
  Report Type: Report from Study
  Country: None (occurrence: NL)
  Receive Date: 20171115
  Receipt Date: 20180216
  Transmission Date: 20180508
  Serious: Yes (Hospitalization)
  Sender: FDA-Public Use
  Company Number: NL-ABBVIE-17K-114-2163339-00

PATIENT
  Sex: Female

DRUGS (1)
  1. DUODOPA [Suspect]
     Active Substance: CARBIDOPA\LEVODOPA
     Indication: PARKINSON^S DISEASE
     Dosage: MORNING DOSE:12;CONTINUOUS DOSE:3.9;EXTRA DOSE:   4
     Route: 050
     Dates: start: 20160510

REACTIONS (2)
  - Cognitive disorder [Unknown]
  - Parkinson^s disease [Unknown]
